FAERS Safety Report 18097959 (Version 1)
Quarter: 2020Q3

REPORT INFORMATION
  Report Type: Spontaneous
  Country: US (occurrence: US)
  Receive Date: 20200731
  Receipt Date: 20200731
  Transmission Date: 20201103
  Serious: No
  Sender: FDA-Public Use
  Company Number: US-TAKEDA-2020TUS032562

PATIENT
  Age: 85 Year
  Sex: Female
  Weight: 54 kg

DRUGS (3)
  1. NINLARO [Suspect]
     Active Substance: IXAZOMIB CITRATE
     Indication: PLASMA CELL MYELOMA
     Dosage: 3 MILLIGRAM
     Route: 048
     Dates: start: 20191016, end: 20191125
  2. NINLARO [Suspect]
     Active Substance: IXAZOMIB CITRATE
     Dosage: 2 MILLIGRAM
     Route: 048
     Dates: start: 20191126
  3. NINLARO [Suspect]
     Active Substance: IXAZOMIB CITRATE
     Dosage: 2.3 MILLIGRAM
     Route: 048
     Dates: start: 20191021, end: 20200727

REACTIONS (2)
  - Peripheral swelling [Unknown]
  - Renal impairment [Unknown]

NARRATIVE: CASE EVENT DATE: 20200727
